FAERS Safety Report 21288625 (Version 1)
Quarter: 2022Q3

REPORT INFORMATION
  Report Type: Spontaneous
  Country: US (occurrence: US)
  Receive Date: 20220902
  Receipt Date: 20220902
  Transmission Date: 20221026
  Serious: No
  Sender: FDA-Public Use
  Company Number: US-ABBVIE-22K-163-4427235-00

PATIENT
  Sex: Female

DRUGS (1)
  1. SKYRIZI [Suspect]
     Active Substance: RISANKIZUMAB-RZAA
     Indication: Granuloma annulare
     Route: 058

REACTIONS (3)
  - Off label use [Unknown]
  - Injection site haemorrhage [Unknown]
  - Unevaluable event [Not Recovered/Not Resolved]
